FAERS Safety Report 16751721 (Version 1)
Quarter: 2019Q3

REPORT INFORMATION
  Report Type: Report from Study
  Country: IT (occurrence: IT)
  Receive Date: 20190828
  Receipt Date: 20190828
  Transmission Date: 20191005
  Serious: Yes (Hospitalization)
  Sender: FDA-Public Use
  Company Number: IT-TEVA-2019-IT-1098160

PATIENT
  Age: 78 Year
  Sex: Female

DRUGS (11)
  1. FOLIC ACID. [Concomitant]
     Active Substance: FOLIC ACID
     Route: 065
  2. ROSUVASTATIN CALCIUM. [Concomitant]
     Active Substance: ROSUVASTATIN CALCIUM
  3. PAROXETINE. [Concomitant]
     Active Substance: PAROXETINE
     Dosage: 20MILLIGRAM
  4. CLONAZEPAM. [Concomitant]
     Active Substance: CLONAZEPAM
  5. ACETYLSALICYLIC ACID [Concomitant]
     Active Substance: ASPIRIN
  6. RIVASTIGMINE. [Concomitant]
     Active Substance: RIVASTIGMINE
  7. ATENOLOL. [Concomitant]
     Active Substance: ATENOLOL
  8. ESOMEPRAZOLE SODIUM. [Concomitant]
     Active Substance: ESOMEPRAZOLE SODIUM
  9. RAMIPRIL. [Concomitant]
     Active Substance: RAMIPRIL
  10. FENTANYL. [Suspect]
     Active Substance: FENTANYL
     Indication: ARTHRALGIA
     Dosage: 375 MICROGRAM
     Route: 062
     Dates: start: 20190716, end: 20190718
  11. RANOLAZINE. [Concomitant]
     Active Substance: RANOLAZINE

REACTIONS (3)
  - Sopor [Recovering/Resolving]
  - Poisoning [Recovering/Resolving]
  - Medication error [Recovering/Resolving]

NARRATIVE: CASE EVENT DATE: 20190718
